FAERS Safety Report 9402997 (Version 3)
Quarter: 2013Q4

REPORT INFORMATION
  Report Type: Spontaneous
  Country: US (occurrence: US)
  Receive Date: 20130716
  Receipt Date: 20131003
  Transmission Date: 20140711
  Serious: Yes (Hospitalization, Other)
  Sender: FDA-Public Use
  Company Number: US-BAYER-2013-084221

PATIENT
  Age: 30 Year
  Sex: Female
  Weight: 134.69 kg

DRUGS (13)
  1. YAZ [Suspect]
     Indication: MENORRHAGIA
  2. YASMIN [Suspect]
  3. CHROMAGEN [ASCORBIC ACID,CYANOCOBALAMIN,FERROUS FUMARATE,FOLIC ACI [Concomitant]
  4. PHYTONADIONE [Concomitant]
     Dosage: 5 MG, WEEKLY
  5. HYDROCHLOROTHIAZIDE [Concomitant]
     Dosage: 25 MG, UNK
  6. SEASONIQUE [Concomitant]
     Indication: MENORRHAGIA
  7. LORTAB [Concomitant]
  8. HYDROCODONE W/ACETAMINOPHEN [Concomitant]
  9. MEDROXYPROGESTERONE ACETATE [Concomitant]
  10. NORCO [Concomitant]
  11. LUPRON [Concomitant]
     Indication: MENOPAUSE
     Dosage: UNK
     Dates: start: 20100330
  12. PACKED RED BLOOD CELLS [Concomitant]
     Indication: ANAEMIA
  13. CLARITIN [Concomitant]

REACTIONS (5)
  - Limb deformity [None]
  - Deep vein thrombosis [Recovered/Resolved]
  - Pelvic venous thrombosis [Recovered/Resolved]
  - Thrombophlebitis superficial [Recovered/Resolved]
  - Local swelling [None]
